FAERS Safety Report 5766195-2 (Version None)
Quarter: 2008Q2

REPORT INFORMATION
  Report Type: 
  Country: None (occurrence: None)
  Receive Date: 20080606
  Receipt Date: 20080528
  Transmission Date: 20081010
  Serious: Yes (Hospitalization)
  Sender: FDA-Public Use
  Company Number: OSCN-PR-0805L-0306

PATIENT
  Sex: Female

DRUGS (1)
  1. OMNISCAN [Suspect]
     Indication: DRUG USE FOR UNKNOWN INDICATION
     Dosage: 5 ML, SINGLE DOSE, I.T.
     Route: 037

REACTIONS (7)
  - AMNESIA [None]
  - GRAND MAL CONVULSION [None]
  - HEADACHE [None]
  - HYPOKALAEMIA [None]
  - VENTRICULAR TACHYCARDIA [None]
  - VOMITING [None]
  - WRONG TECHNIQUE IN DRUG USAGE PROCESS [None]
